FAERS Safety Report 4427508-7 (Version None)
Quarter: 2004Q3

REPORT INFORMATION
  Report Type: 
  Country: None (occurrence: None)
  Receive Date: 20040812
  Receipt Date: 20040802
  Transmission Date: 20050211
  Serious: Yes (Hospitalization)
  Sender: FDA-Public Use
  Company Number: REM_00059_2004

PATIENT
  Age: 47 Year
  Sex: Female
  Weight: 56 kg

DRUGS (9)
  1. REMODULIN [Suspect]
     Indication: PERIPHERAL ISCHAEMIA
     Dosage: 12.5 NG/KG/MIN CONTINUOUS SC
     Route: 058
     Dates: start: 20040409, end: 20040509
  2. PLACEBO [Suspect]
     Indication: PERIPHERAL ISCHAEMIA
     Dosage: 12.5 NG/KG/MIN CONTINOUS SC
     Route: 058
     Dates: start: 20040409, end: 20040509
  3. WARFARIN SODIUM [Concomitant]
  4. LOVENOX [Concomitant]
  5. LOPRESSOR [Concomitant]
  6. KEFLEX [Concomitant]
  7. COLACE [Concomitant]
  8. METHADONE HCL [Concomitant]
  9. ROXICODONE [Concomitant]

REACTIONS (3)
  - CONDITION AGGRAVATED [None]
  - CROHN'S DISEASE [None]
  - DIZZINESS [None]
